FAERS Safety Report 7145715-X (Version None)
Quarter: 2010Q4

REPORT INFORMATION
  Report Type: 
  Country: None (occurrence: None)
  Receive Date: 20101208
  Receipt Date: 20100429
  Transmission Date: 20110411
  Serious: No
  Sender: FDA-Public Use
  Company Number: US-ABBOTT-10P-163-0642461-00

PATIENT
  Sex: Female

DRUGS (1)
  1. ERYTHROMYCIN ESTOLATE [Suspect]
     Indication: TOOTH ABSCESS

REACTIONS (1)
  - URTICARIA [None]
